FAERS Safety Report 13595502 (Version 3)
Quarter: 2019Q1

REPORT INFORMATION
  Report Type: Spontaneous
  Country: US (occurrence: US)
  Receive Date: 20170531
  Receipt Date: 20190131
  Transmission Date: 20190417
  Serious: No
  Sender: FDA-Public Use
  Company Number: US-JNJFOC-20170313312

PATIENT
  Age: 70 Year
  Sex: Male
  Weight: 79.38 kg

DRUGS (2)
  1. MOTRIN IB [Suspect]
     Active Substance: IBUPROFEN
     Indication: TENDONITIS
     Route: 048
     Dates: start: 20170308, end: 20170309
  2. MOTRIN IB [Suspect]
     Active Substance: IBUPROFEN
     Indication: ARTHRITIS
     Route: 048
     Dates: start: 20170308, end: 20170309

REACTIONS (4)
  - Drug ineffective [Unknown]
  - Product prescribing error [Recovering/Resolving]
  - Constipation [Recovering/Resolving]
  - Off label use [Recovering/Resolving]

NARRATIVE: CASE EVENT DATE: 20170308
